FAERS Safety Report 22829344 (Version 2)
Quarter: 2023Q4

REPORT INFORMATION
  Report Type: Spontaneous
  Country: GB (occurrence: GB)
  Receive Date: 20230816
  Receipt Date: 20231120
  Transmission Date: 20240109
  Serious: Yes (Hospitalization, Other)
  Sender: FDA-Public Use
  Company Number: GB-MYLANLABS-2023M1042302

PATIENT
  Age: 59 Year
  Sex: Female

DRUGS (6)
  1. CLOZARIL [Suspect]
     Active Substance: CLOZAPINE
     Indication: Schizophrenia
     Dosage: UNK
     Route: 048
     Dates: start: 20090601, end: 20230405
  2. CLOZARIL [Suspect]
     Active Substance: CLOZAPINE
     Dosage: 175 MILLIGRAM
     Route: 048
  3. CLOZARIL [Suspect]
     Active Substance: CLOZAPINE
     Dosage: 75 MILLIGRAM, QD (MORNING)
     Route: 048
  4. CLOZARIL [Suspect]
     Active Substance: CLOZAPINE
     Dosage: 650 MILLIGRAM, QD (250 MG IN THE MORNING AND 400 MG AT NIGHT)
     Route: 048
  5. CLOZARIL [Suspect]
     Active Substance: CLOZAPINE
     Dosage: 100 MILLIGRAM, QD (AT NIGHT)
     Route: 048
  6. ZOPICLONE [Suspect]
     Active Substance: ZOPICLONE
     Indication: Product used for unknown indication
     Dosage: UNK
     Route: 065

REACTIONS (8)
  - Respiratory failure [Unknown]
  - Overdose [Unknown]
  - Upper gastrointestinal haemorrhage [Unknown]
  - Vomiting [Unknown]
  - Ulcer [Unknown]
  - Antipsychotic drug level decreased [Unknown]
  - Neutrophil count decreased [Unknown]
  - Dehydration [Unknown]

NARRATIVE: CASE EVENT DATE: 20230406
